FAERS Safety Report 7559387-3 (Version None)
Quarter: 2011Q2

REPORT INFORMATION
  Report Type: 
  Country: None (occurrence: None)
  Receive Date: 20110621
  Receipt Date: 20110613
  Transmission Date: 20111010
  Serious: Yes (Hospitalization)
  Sender: FDA-Public Use
  Company Number: US-ASTRAZENECA-2011SE36076

PATIENT
  Age: 61 Year
  Sex: Male

DRUGS (3)
  1. SYMBICORT [Suspect]
     Route: 055
  2. ATACAND [Concomitant]
     Route: 048
  3. NEXIUM [Suspect]
     Route: 048

REACTIONS (2)
  - HAEMORRHAGE [None]
  - BLOOD PRESSURE ABNORMAL [None]
